FAERS Safety Report 23159625 (Version 2)
Quarter: 2023Q4

REPORT INFORMATION
  Report Type: Spontaneous
  Country: KR (occurrence: KR)
  Receive Date: 20231108
  Receipt Date: 20231121
  Transmission Date: 20240110
  Serious: Yes (Death)
  Sender: FDA-Public Use
  Company Number: KR-ELI_LILLY_AND_COMPANY-KR202311003687

PATIENT
  Sex: Female

DRUGS (40)
  1. CYRAMZA [Suspect]
     Active Substance: RAMUCIRUMAB
     Indication: Product used for unknown indication
     Dosage: 500 MG, UNKNOWN
     Route: 042
     Dates: start: 20230926, end: 20230926
  2. URSODIOL [Concomitant]
     Active Substance: URSODIOL
     Indication: Product used for unknown indication
     Dosage: 100 MG
     Dates: start: 20230920
  3. URSODIOL [Concomitant]
     Active Substance: URSODIOL
     Dosage: 100 MG
     Dates: start: 20230921, end: 20231002
  4. URSODIOL [Concomitant]
     Active Substance: URSODIOL
     Dosage: 100 MG
     Dates: start: 20230925, end: 20230928
  5. HERBALS [Concomitant]
     Active Substance: HERBALS
     Indication: Product used for unknown indication
     Dosage: UNK
     Dates: start: 20230922
  6. GERD [SODIUM ALGINATE] [Concomitant]
     Indication: Product used for unknown indication
     Dosage: UNK
     Dates: start: 20230925, end: 20231003
  7. GERD [SODIUM ALGINATE] [Concomitant]
     Dosage: UNK
     Dates: start: 20230928
  8. SANCUSO [Concomitant]
     Active Substance: GRANISETRON
     Indication: Product used for unknown indication
     Dosage: UNK
     Dates: start: 20231002
  9. FOTAGEL [Concomitant]
     Indication: Product used for unknown indication
     Dosage: UNK
     Dates: start: 20230922
  10. FOTAGEL [Concomitant]
     Dosage: UNK
     Dates: start: 20230923
  11. FOTAGEL [Concomitant]
     Dosage: UNK
     Dates: start: 20230924
  12. NALOXONE HYDROCHLORIDE\OXYCODONE HYDROCHLORIDE [Concomitant]
     Active Substance: NALOXONE HYDROCHLORIDE\OXYCODONE HYDROCHLORIDE
     Indication: Product used for unknown indication
     Dosage: 2.5 MG
     Dates: start: 20230921, end: 20230928
  13. NALOXONE HYDROCHLORIDE\OXYCODONE HYDROCHLORIDE [Concomitant]
     Active Substance: NALOXONE HYDROCHLORIDE\OXYCODONE HYDROCHLORIDE
     Dosage: 2.5 MG
     Dates: start: 20230921, end: 20231003
  14. GODEX [ADENINE HYDROCHLORIDE;BIFENDATE;CARNIT [Concomitant]
     Indication: Product used for unknown indication
     Dosage: UNK
     Dates: start: 20230920, end: 20231002
  15. GODEX [ADENINE HYDROCHLORIDE;BIFENDATE;CARNIT [Concomitant]
     Dosage: UNK
     Dates: start: 20230928
  16. VEKLURY [Concomitant]
     Active Substance: REMDESIVIR
     Indication: Product used for unknown indication
     Dosage: 100 MG
     Dates: start: 20231001
  17. VEKLURY [Concomitant]
     Active Substance: REMDESIVIR
     Dosage: 100 MG
     Dates: start: 20231002, end: 20231003
  18. SODIUM CHLORIDE [Concomitant]
     Active Substance: SODIUM CHLORIDE
     Indication: Product used for unknown indication
     Dosage: 100 MG
     Dates: start: 20230919, end: 20231001
  19. SODIUM CHLORIDE [Concomitant]
     Active Substance: SODIUM CHLORIDE
     Dosage: 100 MG
     Dates: start: 20230920, end: 20230925
  20. VANCOMYCIN [Concomitant]
     Active Substance: VANCOMYCIN
     Indication: Product used for unknown indication
     Dosage: 1 G
     Dates: start: 20230919, end: 20231001
  21. VANCOMYCIN [Concomitant]
     Active Substance: VANCOMYCIN
     Dosage: 1 G
     Dates: start: 20230920, end: 20230925
  22. HARTMANN [CALCIUM CHLORIDE;MAGNESIUM CHLORIDE [Concomitant]
     Indication: Product used for unknown indication
     Dosage: UNK
     Dates: start: 20230920
  23. DEXAMETHASONE SODIUM PHOSPHATE [Concomitant]
     Active Substance: DEXAMETHASONE SODIUM PHOSPHATE
     Indication: Product used for unknown indication
     Dosage: UNK
     Dates: start: 20230926, end: 20231002
  24. TRAMADOL HYDROCHLORIDE [Concomitant]
     Active Substance: TRAMADOL HYDROCHLORIDE
     Indication: Product used for unknown indication
     Dosage: 50 MG
     Dates: start: 20230920, end: 20230921
  25. PENIRAMIN [Concomitant]
     Indication: Product used for unknown indication
     Dosage: UNK
     Dates: start: 20230924, end: 20230930
  26. MACPERAN [METOCLOPRAMIDE HYDROCHLORIDE] [Concomitant]
     Indication: Product used for unknown indication
     Dosage: UNK
     Dates: start: 20230924
  27. MACPERAN [METOCLOPRAMIDE HYDROCHLORIDE] [Concomitant]
     Dosage: UNK
     Dates: start: 20230924, end: 20230930
  28. ALBUMIN HUMAN [Concomitant]
     Active Substance: ALBUMIN HUMAN
     Indication: Product used for unknown indication
     Dosage: UNK
     Dates: start: 20230920, end: 20230922
  29. DEXTROSE [Concomitant]
     Active Substance: DEXTROSE\DEXTROSE MONOHYDRATE
     Indication: Product used for unknown indication
     Dosage: UNK
     Dates: start: 20230926, end: 20231002
  30. DEXTROSE [Concomitant]
     Active Substance: DEXTROSE\DEXTROSE MONOHYDRATE
     Dosage: UNK
     Dates: start: 20230919, end: 20231002
  31. DEXTROSE [Concomitant]
     Active Substance: DEXTROSE\DEXTROSE MONOHYDRATE
     Dosage: UNK
     Dates: start: 20230920, end: 20230927
  32. COMBIFLEX LIPID CENTRAL [Concomitant]
     Indication: Product used for unknown indication
     Dosage: UNK
     Dates: start: 20230920, end: 20230930
  33. ENOXAPARIN SODIUM [Concomitant]
     Active Substance: ENOXAPARIN SODIUM
     Indication: Product used for unknown indication
     Dosage: 60 MG
     Dates: start: 20230926
  34. ENOXAPARIN SODIUM [Concomitant]
     Active Substance: ENOXAPARIN SODIUM
     Dosage: 60 MG
     Dates: start: 20230926, end: 20231003
  35. TAXOTERE [Concomitant]
     Active Substance: DOCETAXEL
     Indication: Product used for unknown indication
     Dosage: UNK
     Dates: start: 20230926, end: 20231002
  36. HANA PETHIDINE HCL [Concomitant]
     Indication: Product used for unknown indication
     Dosage: UNK
     Dates: start: 20230925
  37. GRASIN [Concomitant]
     Indication: Product used for unknown indication
     Dosage: UNK
     Dates: start: 20230920, end: 20230923
  38. TAMIPOOL [ASCORBIC ACID;BIOTIN;CYANOCOBALAMIN [Concomitant]
     Indication: Product used for unknown indication
     Dosage: UNK
     Dates: start: 20230920, end: 20230929
  39. OMNIPAQUE [Concomitant]
     Active Substance: IOHEXOL
     Indication: Product used for unknown indication
     Dosage: UNK
     Dates: start: 20230925
  40. PLASMA SOLUTION A [Concomitant]
     Indication: Product used for unknown indication
     Dosage: UNK
     Dates: start: 20230919

REACTIONS (1)
  - Lung neoplasm malignant [Fatal]
